FAERS Safety Report 17257361 (Version 1)
Quarter: 2020Q1

REPORT INFORMATION
  Report Type: Spontaneous
  Country: US (occurrence: US)
  Receive Date: 20200109
  Receipt Date: 20200109
  Transmission Date: 20200409
  Serious: Yes (Other)
  Sender: FDA-Public Use
  Company Number: None

PATIENT
  Age: 66 Year
  Sex: Female
  Weight: 73.35 kg

DRUGS (1)
  1. ESZOPLICONE 3 MG [Suspect]
     Active Substance: ESZOPICLONE
     Indication: INSOMNIA
     Dosage: ?          QUANTITY:30 TABLET(S);?
     Route: 048
     Dates: start: 20191223, end: 20200107

REACTIONS (2)
  - Insomnia [None]
  - Drug ineffective [None]

NARRATIVE: CASE EVENT DATE: 20191223
